FAERS Safety Report 22317072 (Version 2)
Quarter: 2023Q2

REPORT INFORMATION
  Report Type: Spontaneous
  Country: CN (occurrence: CN)
  Receive Date: 20230514
  Receipt Date: 20230519
  Transmission Date: 20230721
  Serious: Yes (Other)
  Sender: FDA-Public Use
  Company Number: CN-PRINSTON PHARMACEUTICAL INC.-2023PRN00205

PATIENT
  Age: 49 Year
  Sex: Male

DRUGS (7)
  1. CLOPIDOGREL [Suspect]
     Active Substance: CLOPIDOGREL BISULFATE
     Indication: Cerebral infarction
     Dosage: 75 MG, 1X/DAY (AT NIGHT)
     Route: 048
  2. CLOPIDOGREL [Suspect]
     Active Substance: CLOPIDOGREL BISULFATE
     Dosage: 300 MG, LOADING DOSE
     Route: 048
  3. REPAGLINIDE [Suspect]
     Active Substance: REPAGLINIDE
     Indication: Type 2 diabetes mellitus
     Dosage: 4 MG, 3X/DAY; 1 MG MORNING, 2 MG AT NOON, 1 MG AT NIGHT
     Route: 048
  4. REPAGLINIDE [Suspect]
     Active Substance: REPAGLINIDE
     Dosage: 1.5 MG, 1X/DAY; 1 MG MORNING, 0.5 MG AFTERNOON
     Dates: end: 20210427
  5. BERING [Concomitant]
     Dosage: 2 G, 3X/DAY
  6. UTI [Concomitant]
     Dosage: 5 MG, 3X/DAY
  7. FELODIPINE [Concomitant]
     Active Substance: FELODIPINE
     Indication: Hypertension
     Dosage: 10 MG, 3X/DAY

REACTIONS (2)
  - Drug interaction [Recovered/Resolved]
  - Hypoglycaemia [Recovered/Resolved]
